FAERS Safety Report 13466347 (Version 1)
Quarter: 2017Q2

REPORT INFORMATION
  Report Type: Spontaneous
  Country: FR (occurrence: FR)
  Receive Date: 20170421
  Receipt Date: 20170421
  Transmission Date: 20170830
  Serious: Yes (Hospitalization)
  Sender: FDA-Public Use
  Company Number: FR-EMD SERONO-8153822

PATIENT
  Age: 29 Year
  Sex: Female

DRUGS (3)
  1. DECAPEPTYL                         /00486501/ [Suspect]
     Active Substance: GONADORELIN
     Indication: IN VITRO FERTILISATION
     Dosage: FORM OF ADMINISTRATION: POWDER AND SOLVENT FOR SUSPENSION FOR INJECTION IN EXTENDED RELEASE FORM OVE
     Route: 030
     Dates: start: 201702
  2. PUREGON                            /01348901/ [Suspect]
     Active Substance: FOLLITROPIN
     Indication: IN VITRO FERTILISATION
     Route: 058
     Dates: start: 201702, end: 201702
  3. OVITRELLE [Suspect]
     Active Substance: CHORIOGONADOTROPIN ALFA
     Indication: IN VITRO FERTILISATION
     Route: 058
     Dates: start: 20170227

REACTIONS (3)
  - Ovarian hyperstimulation syndrome [Recovered/Resolved]
  - Liver function test abnormal [Unknown]
  - Ascites [Recovered/Resolved]

NARRATIVE: CASE EVENT DATE: 20170316
